FAERS Safety Report 16939592 (Version 1)
Quarter: 2019Q4

REPORT INFORMATION
  Report Type: Spontaneous
  Country: GB (occurrence: GB)
  Receive Date: 20191021
  Receipt Date: 20191021
  Transmission Date: 20200122
  Serious: Yes (Disabling)
  Sender: FDA-Public Use
  Company Number: GB-TEVA-2019-GB-1123699

PATIENT
  Age: 60 Year
  Sex: Female
  Weight: 103 kg

DRUGS (8)
  1. CITALOPRAM [Concomitant]
     Active Substance: CITALOPRAM HYDROBROMIDE
     Dosage: MORNING, WHILST ESCITALOPRAM 10MG IS UNAVAILABLE, THIS IS AN EQUIVALANT DOSE (1 DOSAGE FORM PER DAY)
     Dates: start: 20190806
  2. ZOPICLONE [Concomitant]
     Active Substance: ZOPICLONE
     Dosage: TAKE ONE OR TWO AT NIGHT
     Dates: start: 20190709, end: 20190723
  3. MIRTAZAPINE. [Suspect]
     Active Substance: MIRTAZAPINE
     Dosage: NIGHT (30 MILLIGRAM PER DAY)
     Dates: start: 20190902, end: 20190903
  4. CLENIL MODULITE [Concomitant]
     Active Substance: BECLOMETHASONE DIPROPIONATE
     Dosage: 4 DOSAGE FORMS PER DAY
     Route: 055
     Dates: start: 20190328
  5. TIBOLONE [Concomitant]
     Active Substance: TIBOLONE
     Dosage: 1 DOSAGE FORM PER DAY
     Dates: start: 20190328
  6. SALBUTAMOL [Concomitant]
     Active Substance: ALBUTEROL
     Dosage: 1-2 PUFFS EVERY 4 HOURS
     Route: 055
     Dates: start: 20190328
  7. ESCITALOPRAM [Concomitant]
     Active Substance: ESCITALOPRAM OXALATE
     Dosage: MORNING (1 DOSAGE FORM PER DAY)
     Dates: start: 20190328, end: 20190902
  8. DIAZEPAM. [Concomitant]
     Active Substance: DIAZEPAM
     Dosage: TAKE ONE UP TO THREE TIMES DAILY WHEN REQUIRED
     Dates: start: 20190709, end: 20190716

REACTIONS (2)
  - Myalgia [Recovered/Resolved]
  - Musculoskeletal stiffness [Recovered/Resolved]

NARRATIVE: CASE EVENT DATE: 20190903
